FAERS Safety Report 8017407-6 (Version None)
Quarter: 2012Q1

REPORT INFORMATION
  Report Type: 
  Country: None (occurrence: None)
  Receive Date: 20120102
  Receipt Date: 20111219
  Transmission Date: 20120608
  Serious: Yes (Death)
  Sender: FDA-Public Use
  Company Number: US-PFIZER INC-2011311430

PATIENT
  Age: 54 Year
  Sex: Female

DRUGS (4)
  1. OXYCODONE HCL [Suspect]
     Route: 048
  2. DIPHENHYDRAMINE HCL [Suspect]
  3. METHAMPHETAMINE HYDROCHLORIDE [Suspect]
  4. AMPHETAMINES [Suspect]

REACTIONS (3)
  - CARDIAC ARREST [None]
  - DEATH [None]
  - RESPIRATORY ARREST [None]
